FAERS Safety Report 20447509 (Version 1)
Quarter: 2022Q1

REPORT INFORMATION
  Report Type: Report from Study
  Country: US (occurrence: US)
  Receive Date: 20220209
  Receipt Date: 20220209
  Transmission Date: 20220424
  Serious: No
  Sender: FDA-Public Use
  Company Number: US-HRARD-2021000052

PATIENT
  Sex: Female

DRUGS (4)
  1. LYSODREN [Suspect]
     Active Substance: MITOTANE
     Dosage: 06 TABLETS TWICE DAILY
     Route: 048
     Dates: start: 20200805
  2. LYSODREN [Suspect]
     Active Substance: MITOTANE
     Route: 048
     Dates: end: 202101
  3. LYSODREN [Suspect]
     Active Substance: MITOTANE
     Dosage: 06 TABLETS TWICE DAILY
     Route: 048
     Dates: start: 202101
  4. METFORMIN [Suspect]
     Active Substance: METFORMIN HYDROCHLORIDE

REACTIONS (4)
  - Diarrhoea [Unknown]
  - Nausea [Unknown]
  - Fatigue [Unknown]
  - Off label use [Not Recovered/Not Resolved]

NARRATIVE: CASE EVENT DATE: 20200101
